FAERS Safety Report 8174341-9 (Version None)
Quarter: 2012Q1

REPORT INFORMATION
  Report Type: 
  Country: None (occurrence: None)
  Receive Date: 20120229
  Receipt Date: 20120220
  Transmission Date: 20120608
  Serious: Yes (Hospitalization)
  Sender: FDA-Public Use
  Company Number: JP-JNJFOC-20120205420

PATIENT
  Age: 77 Year
  Sex: Male

DRUGS (17)
  1. RIFAMPICIN [Interacting]
     Indication: TUBERCULOSIS
     Route: 048
     Dates: start: 20110624
  2. CELECOXIB [Concomitant]
     Indication: CANCER PAIN
     Route: 048
  3. ROHYPNOL [Concomitant]
     Route: 048
  4. FENTANYL-100 [Suspect]
     Indication: CANCER PAIN
     Route: 062
     Dates: end: 20110628
  5. PYRIDOXAL CALCIUM PHOSPHATE [Concomitant]
     Route: 048
  6. MUCOSOLVAN [Concomitant]
     Route: 048
  7. THEO-DUR [Concomitant]
     Route: 048
  8. MAGNESIUM OXIDE [Concomitant]
     Route: 048
  9. PROCHLORPERAZINE [Concomitant]
     Route: 048
  10. ETHAMBUTOL HYDROCHLORIDE [Concomitant]
     Indication: TUBERCULOSIS
     Route: 048
  11. AMLODIPINE [Concomitant]
     Route: 048
  12. FENTANYL-100 [Suspect]
     Route: 062
     Dates: start: 20110628, end: 20110701
  13. REBAMIPIDE [Concomitant]
     Route: 048
  14. ZYRTEC [Concomitant]
     Route: 048
  15. ISONIAZID [Concomitant]
     Indication: TUBERCULOSIS
     Route: 048
     Dates: start: 20110624
  16. LANSOPRAZOLE [Concomitant]
     Route: 048
  17. ETHAMBUTOL HYDROCHLORIDE [Concomitant]
     Route: 048
     Dates: start: 20110624

REACTIONS (2)
  - INADEQUATE ANALGESIA [None]
  - DRUG INTERACTION [None]
